FAERS Safety Report 6027251-7 (Version None)
Quarter: 2008Q4

REPORT INFORMATION
  Report Type: 
  Country: None (occurrence: None)
  Receive Date: 20081222
  Receipt Date: 20081121
  Transmission Date: 20090506
  Serious: No
  Sender: FDA-Public Use
  Company Number: US-WYE-H06951008

PATIENT
  Age: 29 Year
  Sex: Female
  Weight: 77.18 kg

DRUGS (2)
  1. PRISTIQ [Suspect]
     Indication: DEPRESSION
     Dosage: 50 MG 1X PER 1 DAY, ORAL
     Route: 048
     Dates: start: 20081119
  2. SYNTHROID [Concomitant]

REACTIONS (2)
  - CRYING [None]
  - HEADACHE [None]
